FAERS Safety Report 13130885 (Version 1)
Quarter: 2017Q1

REPORT INFORMATION
  Report Type: Spontaneous
  Country: US (occurrence: US)
  Receive Date: 20170118
  Receipt Date: 20170118
  Transmission Date: 20170428
  Serious: Yes (Death)
  Sender: FDA-Public Use
  Company Number: None

PATIENT
  Age: 82 Year
  Sex: Female

DRUGS (1)
  1. DOFETILIDE .25 MG PFIZER [Suspect]
     Active Substance: DOFETILIDE
     Indication: MALAISE
     Route: 048
     Dates: start: 20150619, end: 20170102

REACTIONS (1)
  - Death [None]

NARRATIVE: CASE EVENT DATE: 20170103
